FAERS Safety Report 16048771 (Version 2)
Quarter: 2019Q1

REPORT INFORMATION
  Report Type: Spontaneous
  Country: CA (occurrence: CA)
  Receive Date: 20190307
  Receipt Date: 20190321
  Transmission Date: 20190418
  Serious: Yes (Death)
  Sender: FDA-Public Use
  Company Number: CA-PFIZER INC-2017255287

PATIENT
  Age: 61 Year
  Sex: Female

DRUGS (1)
  1. IBRANCE [Suspect]
     Active Substance: PALBOCICLIB
     Dosage: 125 MG, CYCLIC (FOR 21 DAYS AND 7 DAYS OFF)
     Dates: start: 20170330

REACTIONS (2)
  - Blood test abnormal [Unknown]
  - Neoplasm progression [Fatal]
